FAERS Safety Report 17800788 (Version 1)
Quarter: 2020Q2

REPORT INFORMATION
  Report Type: Spontaneous
  Country: RU (occurrence: RU)
  Receive Date: 20200519
  Receipt Date: 20200519
  Transmission Date: 20200714
  Serious: Yes (Life-Threatening)
  Sender: FDA-Public Use
  Company Number: RU-TEVA-2020-RU-1238046

PATIENT
  Age: 18 Year
  Sex: Female
  Weight: 77 kg

DRUGS (1)
  1. SUMAMED [Suspect]
     Active Substance: AZITHROMYCIN ANHYDROUS
     Dosage: DAILY DOSE, SINGLE DOSE: 1 TABLET / 1 TABLET DOSE
     Route: 048
     Dates: start: 20190422, end: 20190422

REACTIONS (2)
  - Angioedema [Recovered/Resolved]
  - Dyspnoea [Recovered/Resolved]

NARRATIVE: CASE EVENT DATE: 20190422
